FAERS Safety Report 11789118 (Version 1)
Quarter: 2015Q4

REPORT INFORMATION
  Report Type: Spontaneous
  Country: BR (occurrence: None)
  Receive Date: 20151130
  Receipt Date: 20151130
  Transmission Date: 20160305
  Serious: Yes (Hospitalization)
  Sender: FDA-Public Use
  Company Number: None

PATIENT
  Age: 68 Year
  Sex: Male
  Weight: 76 kg

DRUGS (3)
  1. WARFARIN MARIVAN [Suspect]
     Active Substance: WARFARIN
     Indication: CARDIAC DISORDER
     Dates: start: 20120617, end: 20150929
  2. WARFARIN MARIVAN [Suspect]
     Active Substance: WARFARIN
     Indication: CARDIAC VALVE PROSTHESIS USER
     Dates: start: 20120617, end: 20150929
  3. HEPARIN [Suspect]
     Active Substance: HEPARIN SODIUM
     Indication: HEPATIC CIRRHOSIS

REACTIONS (8)
  - Herpes zoster [None]
  - Respiratory disorder [None]
  - Cerebral thrombosis [None]
  - Anaemia [None]
  - Platelet count decreased [None]
  - Hepatitis C [None]
  - Renal disorder [None]
  - Hepatic cirrhosis [None]

NARRATIVE: CASE EVENT DATE: 20151127
